FAERS Safety Report 8759911 (Version 2)
Quarter: 2012Q4

REPORT INFORMATION
  Report Type: 
  Country: US (occurrence: US)
  Receive Date: 20120829
  Receipt Date: 20120927
  Transmission Date: 20130627
  Serious: Yes (Life-Threatening, Hospitalization)
  Sender: FDA-Public Use
  Company Number: US-BAYER-2012-089323

PATIENT
  Age: 73 Year
  Sex: Female

DRUGS (4)
  1. ACETYLSALICYLIC ACID({=100 MG) [Suspect]
     Indication: ATRIAL FIBRILLATION
     Dosage: 81 mg, QD
     Route: 048
  2. ACETYLSALICYLIC ACID({=100 MG) [Suspect]
     Indication: ANTIPHOSPHOLIPID SYNDROME
  3. DABIGATRAN [Suspect]
     Indication: ATRIAL FIBRILLATION
     Dosage: 150 mg
     Route: 048
  4. DABIGATRAN [Suspect]
     Indication: ANTIPHOSPHOLIPID SYNDROME

REACTIONS (4)
  - Cardiac tamponade [Recovered/Resolved]
  - Acute myocardial infarction [Recovered/Resolved]
  - Hypotension [None]
  - Acute myocardial infarction [None]
